FAERS Safety Report 6299303-8 (Version None)
Quarter: 2009Q3

REPORT INFORMATION
  Report Type: 
  Country: None (occurrence: None)
  Receive Date: 20090806
  Receipt Date: 20090730
  Transmission Date: 20100115
  Serious: Yes (Other)
  Sender: FDA-Public Use
  Company Number: IT-AMGEN-UK358158

PATIENT
  Age: 82 Year
  Sex: Male

DRUGS (6)
  1. ARANESP [Suspect]
     Indication: RENAL FAILURE CHRONIC
     Route: 058
     Dates: start: 20090618, end: 20090628
  2. ESOMEPRAZOLE [Concomitant]
  3. LASIX [Concomitant]
  4. TRIATEC [Concomitant]
  5. CASODEX (ASTRA ZENECA) [Concomitant]
  6. MANIDIPINE HYDROCHLORIDE [Concomitant]

REACTIONS (1)
  - PSYCHOMOTOR HYPERACTIVITY [None]
